FAERS Safety Report 13070919 (Version 1)
Quarter: 2016Q4

REPORT INFORMATION
  Report Type: Report from Study
  Country: NL (occurrence: NL)
  Receive Date: 20161229
  Receipt Date: 20161229
  Transmission Date: 20170207
  Serious: Yes (Hospitalization)
  Sender: FDA-Public Use
  Company Number: PHHY2016NL173018

PATIENT
  Age: 52 Year
  Sex: Female

DRUGS (1)
  1. GILENYA [Suspect]
     Active Substance: FINGOLIMOD HYDROCHLORIDE
     Indication: MULTIPLE SCLEROSIS
     Dosage: UNK, QD
     Route: 048

REACTIONS (20)
  - Anion gap increased [Unknown]
  - PO2 decreased [Unknown]
  - Neutrophil count increased [Unknown]
  - Skin necrosis [Not Recovered/Not Resolved]
  - Red blood cell count decreased [Unknown]
  - Monocyte count increased [Unknown]
  - Erysipelas [Not Recovered/Not Resolved]
  - Blood glucose increased [Unknown]
  - Mean cell haemoglobin increased [Recovered/Resolved]
  - Lymphocyte count decreased [Unknown]
  - Platelet count increased [Unknown]
  - Blood creatinine increased [Unknown]
  - Mean cell haemoglobin concentration decreased [Unknown]
  - Blood urea increased [Recovered/Resolved]
  - Blood phosphorus decreased [Unknown]
  - Haematocrit decreased [Unknown]
  - Mean cell volume increased [Unknown]
  - White blood cell count increased [Unknown]
  - Blood potassium increased [Recovered/Resolved]
  - Haemoglobin decreased [Unknown]

NARRATIVE: CASE EVENT DATE: 20160829
